FAERS Safety Report 24943739 (Version 1)
Quarter: 2025Q1

REPORT INFORMATION
  Report Type: Spontaneous
  Country: US (occurrence: US)
  Receive Date: 20250207
  Receipt Date: 20250207
  Transmission Date: 20250409
  Serious: Yes (Other)
  Sender: ELI LILLY AND COMPANY
  Company Number: US-ELI_LILLY_AND_COMPANY-US202501019223

PATIENT
  Age: 77 Year
  Sex: Male

DRUGS (3)
  1. BASAGLAR [Suspect]
     Active Substance: INSULIN GLARGINE
     Indication: Diabetes mellitus
     Dosage: 30 U, DAILY
     Route: 065
  2. HUMALOG [Suspect]
     Active Substance: INSULIN LISPRO
     Indication: Diabetes mellitus
     Dosage: 10 MG, TID
     Route: 065
  3. BYDUREON [Concomitant]
     Active Substance: EXENATIDE
     Indication: Diabetes mellitus

REACTIONS (8)
  - Respiratory distress [Unknown]
  - Post-traumatic stress disorder [Unknown]
  - Bronchiolitis [Unknown]
  - Rhinitis allergic [Unknown]
  - Injury associated with device [Unknown]
  - Incorrect dose administered [Unknown]
  - Sinusitis [Unknown]
  - Blood glucose decreased [Unknown]
